FAERS Safety Report 8561254-3 (Version None)
Quarter: 2012Q3

REPORT INFORMATION
  Report Type: 
  Country: None (occurrence: None)
  Receive Date: 20120802
  Receipt Date: 20120725
  Transmission Date: 20120928
  Serious: Yes (Other)
  Sender: FDA-Public Use
  Company Number: US-PFIZER INC-2011252466

PATIENT
  Sex: Male
  Weight: 103.86 kg

DRUGS (16)
  1. DOXYCYCLINE HYCLATE [Suspect]
     Indication: RESPIRATORY TRACT IRRITATION
     Dosage: 100 MG, 2X/DAY
     Route: 048
     Dates: start: 20101130, end: 20101209
  2. CEPHALEXIN [Suspect]
     Indication: RESPIRATORY TRACT IRRITATION
     Dosage: 500 MG, 3X/DAY
     Route: 048
     Dates: start: 20101123, end: 20101129
  3. CITALOPRAM HYDROBROMIDE [Concomitant]
     Indication: ANXIETY
  4. POTASSIUM CHLORIDE [Concomitant]
     Indication: HYPERTENSION
     Dosage: 20MEQ, 1X/DAY
     Route: 048
     Dates: start: 20070101
  5. POTASSIUM CHLORIDE [Concomitant]
     Indication: SUPPLEMENTATION THERAPY
  6. COUMADIN [Concomitant]
     Indication: ATRIAL FIBRILLATION
     Dosage: 75 MG, 1X/DAY
     Route: 048
     Dates: start: 19700101
  7. METOPROLOL [Concomitant]
     Indication: HYPERTENSION
     Dosage: 25 MG, 1X/DAY
     Route: 048
     Dates: start: 19800101
  8. DIGOXIN [Concomitant]
     Indication: ATRIAL FIBRILLATION
     Dosage: 0.125 MG, 1X/DAY
     Route: 048
     Dates: start: 19700101
  9. TESSALON [Suspect]
     Indication: RESPIRATORY TRACT IRRITATION
     Dosage: 200 MG, 3X/DAY
     Route: 048
     Dates: start: 20101130, end: 20101205
  10. BACTRIM DS [Suspect]
     Indication: URINARY TRACT INFECTION
     Dosage: 1 TAB, 2X/DAY
     Route: 048
     Dates: start: 20110124
  11. CITALOPRAM HYDROBROMIDE [Concomitant]
     Indication: DEPRESSION
     Dosage: 20 MG, 1X/DAY
     Route: 048
     Dates: start: 20040101
  12. FUROSEMIDE [Concomitant]
     Indication: HYPERTENSION
     Dosage: 40 MG, 1X/DAY
     Route: 048
     Dates: start: 20080101
  13. CIPROFLOXACIN [Suspect]
     Indication: URINARY TRACT INFECTION
     Dosage: 500 MG, 2X/DAY
     Route: 048
     Dates: start: 20110117, end: 20110124
  14. PLACEBO [Suspect]
     Indication: HIV PERIPHERAL NEUROPATHY
     Dosage: 0 MG/DAY
     Route: 048
     Dates: start: 20100922, end: 20110118
  15. PLACEBO [Suspect]
     Dosage: 0 MG/DAY
     Route: 048
     Dates: start: 20110119, end: 20110125
  16. ATRIPLA [Concomitant]
     Indication: HIV INFECTION
     Dosage: 1 TAB, 1X/DAY
     Route: 048
     Dates: start: 20070101

REACTIONS (7)
  - ASPARTATE AMINOTRANSFERASE INCREASED [None]
  - BLOOD ALKALINE PHOSPHATASE INCREASED [None]
  - BLOOD BILIRUBIN INCREASED [None]
  - CHOLELITHIASIS [None]
  - ALANINE AMINOTRANSFERASE INCREASED [None]
  - GALLBLADDER DISORDER [None]
  - LIVER FUNCTION TEST ABNORMAL [None]
